FAERS Safety Report 25194138 (Version 2)
Quarter: 2025Q2

REPORT INFORMATION
  Report Type: Spontaneous
  Country: US (occurrence: US)
  Receive Date: 20250414
  Receipt Date: 20250511
  Transmission Date: 20250717
  Serious: No
  Sender: SANOFI AVENTIS
  Company Number: US-SA-2025SA104017

PATIENT
  Age: 75 Year
  Sex: Male

DRUGS (2)
  1. DUPIXENT [Suspect]
     Active Substance: DUPILUMAB
     Indication: Neurodermatitis
     Route: 058
     Dates: start: 202503, end: 202503
  2. DUPIXENT [Suspect]
     Active Substance: DUPILUMAB
     Dosage: 300 MG, Q15D
     Route: 058
     Dates: start: 2025, end: 2025

REACTIONS (6)
  - Pain in extremity [Unknown]
  - Groin pain [Unknown]
  - Dysstasia [Unknown]
  - Arthralgia [Unknown]
  - Arthritis [Unknown]
  - Renal surgery [Unknown]

NARRATIVE: CASE EVENT DATE: 20250101
